FAERS Safety Report 24331789 (Version 1)
Quarter: 2024Q3

REPORT INFORMATION
  Report Type: Report from Study
  Country: US (occurrence: US)
  Receive Date: 20240918
  Receipt Date: 20240918
  Transmission Date: 20241016
  Serious: Yes (Hospitalization)
  Sender: BIOGEN
  Company Number: US-BIOGEN-2024BI01282059

PATIENT
  Age: 62 Year
  Sex: Female

DRUGS (1)
  1. VUMERITY [Suspect]
     Active Substance: DIROXIMEL FUMARATE
     Indication: Multiple sclerosis
     Route: 050
     Dates: start: 20210329, end: 20240827

REACTIONS (3)
  - Seizure [Recovered/Resolved]
  - Vertigo [Recovered/Resolved]
  - Blood magnesium decreased [Recovered/Resolved]

NARRATIVE: CASE EVENT DATE: 20240802
